FAERS Safety Report 9013751 (Version 1)
Quarter: 2012Q4

REPORT INFORMATION
  Report Type: Spontaneous
  Country: NO (occurrence: None)
  Receive Date: 20121231
  Receipt Date: 20121231
  Transmission Date: 20130627
  Serious: Yes (Hospitalization)
  Sender: FDA-Public Use
  Company Number: 1536448

PATIENT
  Age: 72 Year
  Sex: Male

DRUGS (4)
  1. IRINOTECAN HYDROCHLORIDE [Suspect]
     Indication: COLON CANCER
     Dates: start: 20121105
  2. FLUOROURACIL [Suspect]
     Indication: COLON CANCER
     Dates: start: 20121105
  3. AVASTIN [Suspect]
     Indication: COLON CANCER
     Dates: start: 20121105
  4. CALCIUM FOLINATE [Concomitant]

REACTIONS (8)
  - Fatigue [None]
  - Muscle twitching [None]
  - Gait disturbance [None]
  - Movement disorder [None]
  - Muscular weakness [None]
  - Gait disturbance [None]
  - Muscular weakness [None]
  - Muscular weakness [None]
